FAERS Safety Report 9015195 (Version 1)
Quarter: 2013Q2

REPORT INFORMATION
  Report Type: Spontaneous
  Country: US (occurrence: None)
  Receive Date: 20130109
  Receipt Date: 20130109
  Transmission Date: 20140414
  Serious: Yes (Hospitalization)
  Sender: FDA-Public Use
  Company Number: None

PATIENT
  Age: 46 Year
  Sex: Female
  Weight: 72.3 kg

DRUGS (8)
  1. PACLITAXEL [Suspect]
     Indication: BREAST CANCER METASTATIC
     Dosage: 145 MG QWEEK IV
     Route: 042
     Dates: start: 20120627
  2. BAVITUXIMAB [Suspect]
     Indication: BREAST CANCER METASTATIC
     Dosage: 225 MG QWEEK IV
     Route: 042
     Dates: start: 20120711
  3. BUPROPRION [Concomitant]
  4. CIPROFLOXACIN [Concomitant]
  5. DOCUSATE SODIUM [Concomitant]
  6. COMPAZINE [Concomitant]
  7. ZOFRAN [Concomitant]
  8. ATIVAN [Concomitant]

REACTIONS (1)
  - Embolism [None]
